FAERS Safety Report 17161858 (Version 1)
Quarter: 2019Q4

REPORT INFORMATION
  Report Type: Spontaneous
  Country: LV (occurrence: LV)
  Receive Date: 20191217
  Receipt Date: 20191217
  Transmission Date: 20200122
  Serious: Yes (Other)
  Sender: FDA-Public Use
  Company Number: LV-TEVA-2019-LV-1152688

PATIENT
  Age: 75 Year
  Sex: Female
  Weight: 92 kg

DRUGS (4)
  1. PRESTARIUM 10 MG APVALKOTAS TABLETES [Concomitant]
     Indication: HYPERTENSION
  2. PERINDOPRIL/AMLODIPIN TEVA 10 MG/10 MG [Suspect]
     Active Substance: AMLODIPINE\PERINDOPRIL
     Indication: HYPERTENSION
     Dosage: FOR ACTIVE INGREDIENT PERINDOPRIL THE STRENGTH IS 10 MILLIGRAM .?FOR ACTIVE INGREDIENT AMLODIPIN THE
     Route: 048
     Dates: start: 20191110, end: 20191110
  3. BISOPROLOL RATIOPHARM 10 MG TABLETES [Suspect]
     Active Substance: BISOPROLOL FUMARATE
     Indication: CARDIAC FAILURE
     Dosage: 10 MG PER DAY
     Route: 048
     Dates: start: 20191110, end: 20191110
  4. CONCOR 5 MG APVALKOTAS TABLETES [Concomitant]
     Active Substance: BISOPROLOL FUMARATE
     Indication: CARDIAC FAILURE

REACTIONS (4)
  - Hypertension [Recovering/Resolving]
  - Face oedema [Recovering/Resolving]
  - Chest pain [Recovering/Resolving]
  - Pollakiuria [Recovering/Resolving]

NARRATIVE: CASE EVENT DATE: 20191110
